APPROVED DRUG PRODUCT: DOXYCYCLINE HYCLATE
Active Ingredient: DOXYCYCLINE HYCLATE
Strength: EQ 150MG BASE
Dosage Form/Route: TABLET, DELAYED RELEASE;ORAL
Application: A200856 | Product #003 | TE Code: AB
Applicant: HERITAGE PHARMACEUTICALS INC DBA AVET PHARMACEUTICALS INC
Approved: Apr 30, 2013 | RLD: No | RS: No | Type: RX